FAERS Safety Report 24246284 (Version 1)
Quarter: 2024Q3

REPORT INFORMATION
  Report Type: Spontaneous
  Country: US (occurrence: US)
  Receive Date: 20240825
  Receipt Date: 20240825
  Transmission Date: 20241016
  Serious: Yes (Other)
  Sender: BAUSCH AND LOMB
  Company Number: US-BAUSCH-BL-2024-012846

PATIENT
  Age: 67 Year
  Sex: Female

DRUGS (2)
  1. TRULANCE [Suspect]
     Active Substance: PLECANATIDE
     Indication: Large intestinal stenosis
     Route: 048
     Dates: start: 2024, end: 2024
  2. TRULANCE [Suspect]
     Active Substance: PLECANATIDE
     Indication: Product use in unapproved indication

REACTIONS (6)
  - Large intestinal stenosis [Recovered/Resolved]
  - Condition aggravated [Recovered/Resolved]
  - Nausea [Recovered/Resolved]
  - Vomiting [Recovered/Resolved]
  - Dizziness [Recovered/Resolved]
  - Product use in unapproved indication [Unknown]

NARRATIVE: CASE EVENT DATE: 20240101
